FAERS Safety Report 6391496-7 (Version None)
Quarter: 2009Q4

REPORT INFORMATION
  Report Type: 
  Country: None (occurrence: None)
  Receive Date: 20091007
  Receipt Date: 20090930
  Transmission Date: 20100525
  Serious: Yes (Hospitalization, Other)
  Sender: FDA-Public Use
  Company Number: US-JNJFOC-20070901425

PATIENT
  Sex: Female
  Weight: 56.7 kg

DRUGS (12)
  1. DURAGESIC-100 [Suspect]
     Route: 062
  2. DURAGESIC-100 [Suspect]
     Route: 062
  3. DURAGESIC-100 [Suspect]
     Route: 062
  4. DURAGESIC-100 [Suspect]
     Route: 062
  5. DURAGESIC-100 [Suspect]
     Indication: PAIN
     Route: 062
  6. HYDROCODONE [Concomitant]
     Route: 048
  7. HYDROCODONE [Concomitant]
     Indication: BREAKTHROUGH PAIN
     Dosage: 10/500MG
     Route: 048
  8. SOMA [Concomitant]
     Route: 048
  9. SOMA [Concomitant]
     Indication: SLEEP DISORDER
     Route: 048
  10. FENTANYL-100 [Concomitant]
     Indication: BREAKTHROUGH PAIN
     Route: 065
  11. MARINOL [Concomitant]
     Indication: NAUSEA
     Route: 048
  12. PERCOCET [Concomitant]
     Indication: PAIN
     Dosage: 10/400 MG
     Route: 048

REACTIONS (17)
  - AUTOMATIC BLADDER [None]
  - DEVICE LEAKAGE [None]
  - DISORIENTATION [None]
  - DRUG DOSE OMISSION [None]
  - DRUG INEFFECTIVE [None]
  - DRUG PRESCRIBING ERROR [None]
  - DYSPNOEA [None]
  - FEELING ABNORMAL [None]
  - HEART RATE ABNORMAL [None]
  - INAPPROPRIATE SCHEDULE OF DRUG ADMINISTRATION [None]
  - IRRITABLE BOWEL SYNDROME [None]
  - MALAISE [None]
  - PAIN [None]
  - PRODUCT QUALITY ISSUE [None]
  - SKIN LESION [None]
  - STAPHYLOCOCCAL INFECTION [None]
  - WITHDRAWAL SYNDROME [None]
